FAERS Safety Report 4867087-3 (Version None)
Quarter: 2005Q4

REPORT INFORMATION
  Report Type: 
  Country: None (occurrence: None)
  Receive Date: 20051222
  Receipt Date: 20051214
  Transmission Date: 20060501
  Serious: Yes (Hospitalization)
  Sender: FDA-Public Use
  Company Number: 2005-11-1212

PATIENT
  Age: 45 Year
  Sex: Male
  Weight: 110.6777 kg

DRUGS (8)
  1. PEG-INTRON [Suspect]
     Indication: HEPATITIS C
     Dosage: 182 MCG QWK SUBCUTANEOUS
     Route: 058
     Dates: start: 20050619, end: 20051115
  2. RIBAVIRIN [Suspect]
     Indication: HEPATITIS C
  3. OXYCODONE [Concomitant]
  4. SOMA [Concomitant]
  5. EFFEXOR [Concomitant]
  6. DIOVAN [Concomitant]
  7. MULTIVITAMIN [Concomitant]
  8. MOTRIN [Concomitant]

REACTIONS (7)
  - HAEMORRHOIDAL HAEMORRHAGE [None]
  - HEADACHE [None]
  - MALAISE [None]
  - NEUTROPENIA [None]
  - RECTAL HAEMORRHAGE [None]
  - THROMBOCYTOPENIA [None]
  - WHITE BLOOD CELL COUNT DECREASED [None]
